FAERS Safety Report 24327572 (Version 2)
Quarter: 2024Q4

REPORT INFORMATION
  Report Type: Report from Study
  Country: US (occurrence: US)
  Receive Date: 20240917
  Receipt Date: 20241002
  Transmission Date: 20250114
  Serious: Yes (Hospitalization, Other)
  Sender: GILEAD
  Company Number: US-GILEAD-2024-0687715

PATIENT
  Sex: Male

DRUGS (4)
  1. AZTREONAM LYSINE [Suspect]
     Active Substance: AZTREONAM LYSINE
     Indication: Cystic fibrosis
     Dosage: 75 MG, TID (FOR 28 DAYS ON, 28 DAYS OFF)
     Route: 055
     Dates: start: 2015
  2. AZTREONAM LYSINE [Suspect]
     Active Substance: AZTREONAM LYSINE
     Indication: Pseudomonas infection
  3. PULMOZYME [Concomitant]
     Active Substance: DORNASE ALFA
     Dosage: INHALE 1 AMPULE (2.5 MG) VIA NEBULIZER ONCE A DAY
  4. TRIKAFTA [Concomitant]
     Active Substance: ELEXACAFTOR\IVACAFTOR\TEZACAFTOR
     Dosage: 2 ORANGE TABS IN THE MORNING AND 1 BLUE TAB IN THE EVENING BY MOUTH APPROXIMATELY 12 HOURS APART

REACTIONS (2)
  - Pseudomonas infection [Unknown]
  - Cystic fibrosis [Unknown]
